FAERS Safety Report 19218227 (Version 2)
Quarter: 2022Q1

REPORT INFORMATION
  Report Type: Spontaneous
  Country: US (occurrence: None)
  Receive Date: 20210502
  Receipt Date: 20220121
  Transmission Date: 20220423
  Serious: Yes (Other)
  Sender: FDA-Public Use
  Company Number: 2021A358044

PATIENT
  Age: 17522 Day
  Sex: Male
  Weight: 134 kg

DRUGS (35)
  1. FARXIGA [Suspect]
     Active Substance: DAPAGLIFLOZIN PROPANEDIOL
     Route: 048
  2. CEPHALEXIN [Concomitant]
     Active Substance: CEPHALEXIN
  3. GLYCYRRHIZIC ACID/SULFAMETHOXAZOLE/AMINOCAPROIC ACID/CHLORPHENAMINE [Concomitant]
  4. ACETAMINOPHEN [Concomitant]
     Active Substance: ACETAMINOPHEN
  5. CLINDAMYCIN [Concomitant]
     Active Substance: CLINDAMYCIN
  6. METHYLPREDNISOLONE [Concomitant]
     Active Substance: METHYLPREDNISOLONE
  7. PRAVASTATIN [Concomitant]
     Active Substance: PRAVASTATIN
  8. METOPROLOL [Concomitant]
     Active Substance: METOPROLOL
  9. OXYCODONE [Concomitant]
     Active Substance: OXYCODONE
  10. AMLODIPINE [Concomitant]
     Active Substance: AMLODIPINE BESYLATE
  11. LISINOPRIL [Concomitant]
     Active Substance: LISINOPRIL
  12. GLIPIZIDE [Concomitant]
     Active Substance: GLIPIZIDE
  13. EPINEPHRINE [Concomitant]
     Active Substance: EPINEPHRINE
  14. METRONIDAZOLE [Concomitant]
     Active Substance: METRONIDAZOLE
  15. LINEZOLID [Concomitant]
     Active Substance: LINEZOLID
  16. CEFTRIAXONE [Concomitant]
     Active Substance: CEFTRIAXONE
  17. SODIUM CHLORIDE [Concomitant]
     Active Substance: SODIUM CHLORIDE
  18. CLONIDINE [Concomitant]
     Active Substance: CLONIDINE
  19. VANCOMYCIN [Concomitant]
     Active Substance: VANCOMYCIN
  20. ZOSYN [Concomitant]
     Active Substance: PIPERACILLIN SODIUM\TAZOBACTAM SODIUM
  21. HYDROMORPHONE [Concomitant]
     Active Substance: HYDROMORPHONE
  22. ONDANSETRON [Concomitant]
     Active Substance: ONDANSETRON
  23. EPINEPHRINE/ETIDOCAINE [Concomitant]
  24. LIDOCAINE [Concomitant]
     Active Substance: LIDOCAINE
  25. PROPOFOL [Concomitant]
     Active Substance: PROPOFOL
  26. FAMOTIDINE [Concomitant]
     Active Substance: FAMOTIDINE
  27. METOCLOPRAMIDE [Concomitant]
     Active Substance: METOCLOPRAMIDE
  28. MIDAZOLAM [Concomitant]
     Active Substance: MIDAZOLAM
  29. MAGNESIUM SULFATE [Concomitant]
     Active Substance: MAGNESIUM SULFATE
  30. XIGDUO XR [Concomitant]
     Active Substance: DAPAGLIFLOZIN PROPANEDIOL\METFORMIN HYDROCHLORIDE
  31. DOXYCYCLINE [Concomitant]
     Active Substance: DOXYCYCLINE
  32. PREDNISONE [Concomitant]
     Active Substance: PREDNISONE
  33. FLUTICASONE [Concomitant]
     Active Substance: FLUTICASONE
  34. SUDAFED [Concomitant]
     Active Substance: PSEUDOEPHEDRINE HYDROCHLORIDE
  35. AVELOX [Concomitant]
     Active Substance: MOXIFLOXACIN HYDROCHLORIDE

REACTIONS (14)
  - Necrotising fasciitis [Unknown]
  - Groin abscess [Unknown]
  - Scrotal cellulitis [Unknown]
  - Sepsis [Unknown]
  - Fascial infection [Unknown]
  - Folliculitis [Unknown]
  - Perineal cellulitis [Unknown]
  - Scrotal abscess [Unknown]
  - Perineal abscess [Unknown]
  - Testicular abscess [Unknown]
  - Obesity [Unknown]
  - Hyperglycaemia [Unknown]
  - Hypertension [Unknown]
  - Diabetes mellitus [Unknown]

NARRATIVE: CASE EVENT DATE: 20160222
